FAERS Safety Report 7605796-3 (Version None)
Quarter: 2011Q3

REPORT INFORMATION
  Report Type: 
  Country: None (occurrence: None)
  Receive Date: 20110705
  Receipt Date: 20110628
  Transmission Date: 20111222
  Serious: No
  Sender: FDA-Public Use
  Company Number: 2011CP000123

PATIENT
  Sex: Female

DRUGS (3)
  1. OFIRMEV [Suspect]
     Dosage: ; IV
     Route: 042
  2. BACITRACIN [Suspect]
     Dosage: ; ONCE ;
  3. TYLENOL W/ CODEINE [Concomitant]

REACTIONS (3)
  - RASH [None]
  - DYSPNOEA [None]
  - ANAPHYLACTIC REACTION [None]
